FAERS Safety Report 10106069 (Version 2)
Quarter: 2014Q3

REPORT INFORMATION
  Report Type: Other
  Country: US (occurrence: US)
  Receive Date: 20140424
  Receipt Date: 20140825
  Transmission Date: 20150326
  Serious: Yes (Hospitalization, Other)
  Sender: FDA-Public Use
  Company Number: US-GSKPPD-2014GSK003957

PATIENT
  Age: 61 Year
  Sex: Male

DRUGS (8)
  1. ASPIRIN. [Concomitant]
     Active Substance: ASPIRIN
     Route: 048
  2. LASIX [Concomitant]
     Active Substance: FUROSEMIDE
     Route: 048
  3. LESCOL XL [Concomitant]
     Active Substance: FLUVASTATIN SODIUM
  4. AVANDIA [Suspect]
     Active Substance: ROSIGLITAZONE MALEATE
     Indication: DIABETES MELLITUS
     Dosage: AVANDIA WAS NOT LISTED AMONG THE PATIENT^S DISCHARGE RECORDS.
     Route: 048
  5. PRINIVIL [Concomitant]
     Active Substance: LISINOPRIL
     Route: 048
  6. COREG [Concomitant]
     Active Substance: CARVEDILOL
     Route: 048
  7. PLAVIX [Concomitant]
     Active Substance: CLOPIDOGREL BISULFATE
     Route: 048
  8. LISINOPRIL. [Concomitant]
     Active Substance: LISINOPRIL

REACTIONS (4)
  - Cardiac failure congestive [Recovered/Resolved]
  - Implantable defibrillator insertion [None]
  - Myocardial infarction [Recovered/Resolved]
  - Cerebrovascular accident [None]

NARRATIVE: CASE EVENT DATE: 20080105
